FAERS Safety Report 9108341 (Version 1)
Quarter: 2013Q1

REPORT INFORMATION
  Report Type: Spontaneous
  Country: MX (occurrence: MX)
  Receive Date: 20130222
  Receipt Date: 20130222
  Transmission Date: 20140127
  Serious: Yes (Other)
  Sender: FDA-Public Use
  Company Number: PHHY2013MX017095

PATIENT
  Age: 78 Year
  Sex: Male

DRUGS (2)
  1. ONBREZ [Suspect]
     Indication: CHRONIC OBSTRUCTIVE PULMONARY DISEASE
     Dosage: 150 UG, DAILY
     Dates: start: 200902
  2. METFORMIN [Concomitant]
     Indication: DIABETES MELLITUS
     Dosage: 2 DF, DAILY
     Dates: start: 197802

REACTIONS (2)
  - Bronchial disorder [Not Recovered/Not Resolved]
  - Arthralgia [Not Recovered/Not Resolved]
